FAERS Safety Report 4819223-2 (Version None)
Quarter: 2005Q4

REPORT INFORMATION
  Report Type: 
  Country: None (occurrence: None)
  Receive Date: 20051102
  Receipt Date: 20051102
  Transmission Date: 20060501
  Serious: Yes (Other)
  Sender: FDA-Public Use
  Company Number: None

PATIENT
  Sex: Male
  Weight: 81 kg

DRUGS (1)
  1. IBUPROFEN [Suspect]
     Indication: PAIN
     Dosage: 800 MG     TID WITH MEALS PRN    PO
     Route: 048
     Dates: start: 20041110, end: 20050818

REACTIONS (3)
  - FAECES DISCOLOURED [None]
  - HAEMORRHAGE [None]
  - ULCER [None]
